FAERS Safety Report 22361901 (Version 28)
Quarter: 2024Q4

REPORT INFORMATION
  Report Type: Report from Study
  Country: CO (occurrence: CO)
  Receive Date: 20230524
  Receipt Date: 20241003
  Transmission Date: 20250114
  Serious: Yes (Hospitalization, Other)
  Sender: TAKEDA
  Company Number: CO-TAKEDA-2023TUS051114

PATIENT
  Age: 3 Year
  Sex: Female
  Weight: 9.6 kg

DRUGS (12)
  1. TEDUGLUTIDE [Suspect]
     Active Substance: TEDUGLUTIDE
     Indication: Short-bowel syndrome
     Dosage: 0.5 MILLIGRAM, QD
     Route: 058
     Dates: start: 20230513
  2. TEDUGLUTIDE [Suspect]
     Active Substance: TEDUGLUTIDE
     Indication: Short-bowel syndrome
     Dosage: 0.5 MILLIGRAM, QD
     Route: 058
     Dates: start: 20230513
  3. TEDUGLUTIDE [Suspect]
     Active Substance: TEDUGLUTIDE
     Indication: Short-bowel syndrome
     Dosage: 0.5 MILLIGRAM, QD
     Route: 058
     Dates: start: 20230513
  4. TEDUGLUTIDE [Suspect]
     Active Substance: TEDUGLUTIDE
     Indication: Short-bowel syndrome
     Dosage: 0.5 MILLIGRAM, QD
     Route: 058
     Dates: start: 20230513
  5. TEDUGLUTIDE [Suspect]
     Active Substance: TEDUGLUTIDE
     Dosage: UNK
     Route: 065
     Dates: start: 20230912
  6. TEDUGLUTIDE [Suspect]
     Active Substance: TEDUGLUTIDE
     Dosage: UNK
     Route: 065
     Dates: start: 20230912
  7. TEDUGLUTIDE [Suspect]
     Active Substance: TEDUGLUTIDE
     Dosage: UNK
     Route: 065
     Dates: start: 20230912
  8. TEDUGLUTIDE [Suspect]
     Active Substance: TEDUGLUTIDE
     Dosage: UNK
     Route: 065
     Dates: start: 20230912
  9. TEDUGLUTIDE [Suspect]
     Active Substance: TEDUGLUTIDE
     Dosage: 0.5 MILLIGRAM, QD
     Route: 058
  10. TEDUGLUTIDE [Suspect]
     Active Substance: TEDUGLUTIDE
     Dosage: 0.5 MILLIGRAM, QD
     Route: 058
  11. TEDUGLUTIDE [Suspect]
     Active Substance: TEDUGLUTIDE
     Dosage: 0.5 MILLIGRAM, QD
     Route: 058
  12. TEDUGLUTIDE [Suspect]
     Active Substance: TEDUGLUTIDE
     Dosage: 0.5 MILLIGRAM, QD
     Route: 058

REACTIONS (32)
  - Diarrhoea [Not Recovered/Not Resolved]
  - Overflow diarrhoea [Unknown]
  - Brain compression [Not Recovered/Not Resolved]
  - CSF volume increased [Not Recovered/Not Resolved]
  - Gastroenteritis [Unknown]
  - Feeling abnormal [Recovered/Resolved]
  - Nervous system disorder [Not Recovered/Not Resolved]
  - Epilepsy [Recovering/Resolving]
  - Petit mal epilepsy [Recovered/Resolved]
  - Feeding intolerance [Unknown]
  - Loss of consciousness [Recovering/Resolving]
  - Unresponsive to stimuli [Not Recovered/Not Resolved]
  - Brain hypoxia [Unknown]
  - Pneumonia [Not Recovered/Not Resolved]
  - Vomiting [Recovering/Resolving]
  - Blood glucose increased [Unknown]
  - Seizure [Recovering/Resolving]
  - Influenza [Not Recovered/Not Resolved]
  - Intestinal obstruction [Recovering/Resolving]
  - Cerebral ventricle dilatation [Not Recovered/Not Resolved]
  - Haemodynamic instability [Unknown]
  - Weight decreased [Unknown]
  - Weight increased [Unknown]
  - Dental caries [Not Recovered/Not Resolved]
  - Treatment noncompliance [Unknown]
  - General physical health deterioration [Unknown]
  - Product availability issue [Unknown]
  - Product dose omission issue [Recovered/Resolved]
  - Product prescribing issue [Unknown]
  - Inappropriate schedule of product administration [Recovered/Resolved]
  - Generalised oedema [Not Recovered/Not Resolved]
  - Incorrect dose administered [Unknown]

NARRATIVE: CASE EVENT DATE: 20230518
